FAERS Safety Report 16414972 (Version 1)
Quarter: 2019Q2

REPORT INFORMATION
  Report Type: Spontaneous
  Country: US (occurrence: US)
  Receive Date: 20190611
  Receipt Date: 20190611
  Transmission Date: 20190711
  Serious: No
  Sender: FDA-Public Use
  Company Number: US-SEPTODONT-201804740

PATIENT
  Age: 31 Year
  Sex: Male

DRUGS (1)
  1. ARTICAINE 4% WITH EPINEPHRINE [Suspect]
     Active Substance: ARTICAINE\EPINEPHRINE
     Indication: DENTAL LOCAL ANAESTHESIA
     Dosage: TWO TO THREE CARPULES
     Route: 004
     Dates: start: 20180626, end: 20180626

REACTIONS (1)
  - Drug ineffective [Recovered/Resolved]

NARRATIVE: CASE EVENT DATE: 20180626
